FAERS Safety Report 8161809-4 (Version None)
Quarter: 2012Q1

REPORT INFORMATION
  Report Type: 
  Country: None (occurrence: None)
  Receive Date: 20120224
  Receipt Date: 20120217
  Transmission Date: 20120608
  Serious: Yes (Other)
  Sender: FDA-Public Use
  Company Number: US-CELGENEUS-163-20785-12020234

PATIENT
  Sex: Female

DRUGS (15)
  1. THALOMID [Suspect]
     Dosage: 50 MILLIGRAM
     Route: 048
     Dates: start: 20110401
  2. THALOMID [Suspect]
     Dosage: 50 MILLIGRAM
     Route: 048
     Dates: start: 20110601, end: 20111201
  3. LASIX [Concomitant]
     Indication: HYPERTENSION
     Dosage: 20 MILLIGRAM
     Route: 065
  4. LISINOPRIL [Concomitant]
     Dosage: 10 MILLIGRAM
     Route: 065
  5. THALOMID [Suspect]
     Dosage: 50 MILLIGRAM
     Route: 048
     Dates: start: 20100501
  6. PLAQUENIL [Concomitant]
     Indication: LICHEN PLANUS
     Dosage: 200 MILLIGRAM
     Route: 065
  7. THALOMID [Suspect]
     Dosage: 50 MILLIGRAM
     Route: 048
     Dates: start: 20100901
  8. NEURONTIN [Concomitant]
     Dosage: 300 MILLIGRAM
     Route: 065
  9. LEVOXYL [Concomitant]
     Indication: THYROID DISORDER
     Dosage: 50 MICROGRAM
     Route: 065
  10. BACTRIM [Concomitant]
     Route: 065
  11. THALOMID [Suspect]
     Indication: LICHEN PLANUS
     Dosage: 50 MILLIGRAM
     Route: 048
     Dates: start: 20090201
  12. THALOMID [Suspect]
     Dosage: 50 MILLIGRAM
     Route: 048
     Dates: start: 20101201
  13. CARVEDILOL [Concomitant]
     Indication: HYPERTENSION
     Dosage: 25 MILLIGRAM
     Route: 065
  14. COUMADIN [Concomitant]
     Route: 065
  15. ULTRAM [Concomitant]
     Route: 065

REACTIONS (5)
  - AORTIC STENOSIS [None]
  - FALL [None]
  - DYSPNOEA [None]
  - MUSCULAR WEAKNESS [None]
  - MYALGIA [None]
